FAERS Safety Report 25669724 (Version 1)
Quarter: 2025Q3

REPORT INFORMATION
  Report Type: Spontaneous
  Country: RS (occurrence: RS)
  Receive Date: 20250812
  Receipt Date: 20250812
  Transmission Date: 20251020
  Serious: Yes (Death, Hospitalization)
  Sender: ACCORD
  Company Number: RS-Accord-498150

PATIENT
  Age: 76 Year
  Sex: Male
  Weight: 65 kg

DRUGS (3)
  1. DOCETAXEL [Suspect]
     Active Substance: DOCETAXEL
     Indication: Prostate cancer metastatic
  2. DEXAMETHASONE [Suspect]
     Active Substance: DEXAMETHASONE
     Indication: Product used for unknown indication
     Dates: start: 20250526
  3. DOCETAXEL [Suspect]
     Active Substance: DOCETAXEL
     Indication: Prostate cancer metastatic
     Dates: start: 20250526

REACTIONS (6)
  - Sepsis [Fatal]
  - Cardiac arrest [Fatal]
  - Diarrhoea [Recovered/Resolved]
  - Productive cough [Recovered/Resolved]
  - Body temperature increased [Unknown]
  - Peripheral swelling [Unknown]

NARRATIVE: CASE EVENT DATE: 20250101
